FAERS Safety Report 16429812 (Version 4)
Quarter: 2021Q2

REPORT INFORMATION
  Report Type: Spontaneous
  Country: US (occurrence: US)
  Receive Date: 20190614
  Receipt Date: 20210618
  Transmission Date: 20210716
  Serious: Yes (Death, Other)
  Sender: FDA-Public Use
  Company Number: US-GILEAD-2019-0412936

PATIENT
  Age: 34 Year
  Sex: Male
  Weight: 67.13 kg

DRUGS (38)
  1. METOPROLOL. [Concomitant]
     Active Substance: METOPROLOL
  2. INSULIN [Concomitant]
     Active Substance: INSULIN NOS
  3. MEROPENEM. [Concomitant]
     Active Substance: MEROPENEM
  4. ACETAMINOPHEN. [Concomitant]
     Active Substance: ACETAMINOPHEN
  5. CEFTAZIDIME. [Concomitant]
     Active Substance: CEFTAZIDIME
  6. MOXIFLOXACIN. [Concomitant]
     Active Substance: MOXIFLOXACIN
  7. BIDIL [Concomitant]
     Active Substance: HYDRALAZINE HYDROCHLORIDE\ISOSORBIDE DINITRATE
  8. ATRIPLA [Suspect]
     Active Substance: EFAVIRENZ\EMTRICITABINE\TENOFOVIR DISOPROXIL FUMARATE
     Dosage: UNK
     Route: 048
     Dates: start: 20120804, end: 201712
  9. SODIUM BICARBONATE. [Concomitant]
     Active Substance: SODIUM BICARBONATE
  10. LOVENOX [LEVOFLOXACIN] [Concomitant]
     Active Substance: LEVOFLOXACIN
  11. JULUCA [Concomitant]
     Active Substance: DOLUTEGRAVIR SODIUM\RILPIVIRINE HYDROCHLORIDE
  12. ATOVAQUONE. [Concomitant]
     Active Substance: ATOVAQUONE
  13. HEPARIN [Concomitant]
     Active Substance: HEPARIN SODIUM
  14. LISINOPRIL. [Concomitant]
     Active Substance: LISINOPRIL
  15. PHOSLO [Concomitant]
     Active Substance: CALCIUM ACETATE
  16. CALCIUM GLUCONATE. [Concomitant]
     Active Substance: CALCIUM GLUCONATE
  17. COUMADIN [Concomitant]
     Active Substance: WARFARIN SODIUM
  18. PREZCOBIX [Concomitant]
     Active Substance: COBICISTAT\DARUNAVIR ETHANOLATE
  19. ZIAGEN [Concomitant]
     Active Substance: ABACAVIR SULFATE
  20. DARUNAVIR AND COBICISTAT [Concomitant]
     Active Substance: COBICISTAT\DARUNAVIR ETHANOLATE
  21. RENVELA [Concomitant]
     Active Substance: SEVELAMER CARBONATE
  22. METRONIDAZOLE. [Concomitant]
     Active Substance: METRONIDAZOLE
  23. EPIVIR [Concomitant]
     Active Substance: LAMIVUDINE
  24. TIVICAY [Concomitant]
     Active Substance: DOLUTEGRAVIR SODIUM
  25. RILPIVIRINE [Concomitant]
     Active Substance: RILPIVIRINE
  26. ATRIPLA [Suspect]
     Active Substance: EFAVIRENZ\EMTRICITABINE\TENOFOVIR DISOPROXIL FUMARATE
     Indication: HIV INFECTION
     Dosage: UNK
     Route: 048
     Dates: start: 201109, end: 201712
  27. LASIX [Concomitant]
     Active Substance: FUROSEMIDE
  28. PREZISTA [Concomitant]
     Active Substance: DARUNAVIR ETHANOLATE
  29. SEVELAMER [Concomitant]
     Active Substance: SEVELAMER
  30. CARVEDILOL. [Concomitant]
     Active Substance: CARVEDILOL
  31. VANCOMYCIN [Concomitant]
     Active Substance: VANCOMYCIN
  32. LACTULOSE. [Concomitant]
     Active Substance: LACTULOSE
  33. TYBOST [Concomitant]
     Active Substance: COBICISTAT
  34. APIXABAN [Concomitant]
     Active Substance: APIXABAN
  35. PATIROMER [Concomitant]
     Active Substance: PATIROMER
  36. CEFEPIME [Concomitant]
     Active Substance: CEFEPIME HYDROCHLORIDE
  37. JANTOVEN [Concomitant]
     Active Substance: WARFARIN SODIUM
  38. ACETAMINOPHEN;HYDROCODONE [Concomitant]
     Active Substance: ACETAMINOPHEN\HYDROCODONE

REACTIONS (10)
  - End stage renal disease [Not Recovered/Not Resolved]
  - Chronic kidney disease [Unknown]
  - Nephrogenic anaemia [Not Recovered/Not Resolved]
  - Anhedonia [Not Recovered/Not Resolved]
  - Death [Fatal]
  - Renal failure [Unknown]
  - Emotional distress [Not Recovered/Not Resolved]
  - Acute kidney injury [Not Recovered/Not Resolved]
  - Anxiety [Not Recovered/Not Resolved]
  - Pain [Not Recovered/Not Resolved]

NARRATIVE: CASE EVENT DATE: 201802
